FAERS Safety Report 25539467 (Version 1)
Quarter: 2025Q3

REPORT INFORMATION
  Report Type: Spontaneous
  Country: US (occurrence: None)
  Receive Date: 20250710
  Receipt Date: 20250710
  Transmission Date: 20251021
  Serious: No
  Sender: FDA-CTU
  Company Number: None

PATIENT
  Age: 82 Year
  Sex: Male
  Weight: 79 kg

DRUGS (2)
  1. BENDAMUSTINE HYDROCHLORIDE [Suspect]
     Active Substance: BENDAMUSTINE HYDROCHLORIDE
     Dates: end: 20160629
  2. RITUXIMAB [Suspect]
     Active Substance: RITUXIMAB
     Dates: end: 20160628

REACTIONS (3)
  - Micturition urgency [None]
  - Pollakiuria [None]
  - Prostate cancer [None]

NARRATIVE: CASE EVENT DATE: 20250317
